FAERS Safety Report 9798729 (Version 3)
Quarter: 2015Q3

REPORT INFORMATION
  Report Type: Spontaneous
  Country: US (occurrence: US)
  Receive Date: 20140106
  Receipt Date: 20150806
  Transmission Date: 20151125
  Serious: No
  Sender: FDA-Public Use
  Company Number: US-GILEAD-2010-0029828

PATIENT
  Age: 66 Year
  Sex: Female

DRUGS (5)
  1. LETAIRIS [Suspect]
     Active Substance: AMBRISENTAN
     Indication: PULMONARY ARTERIAL HYPERTENSION
     Route: 048
     Dates: start: 20100520
  2. LORAZEPAM. [Concomitant]
     Active Substance: LORAZEPAM
  3. METHYLPRED [Concomitant]
     Active Substance: METHYLPREDNISOLONE
  4. CEFTRIAXONE. [Concomitant]
     Active Substance: CEFTRIAXONE
  5. PANCREASE MT [Concomitant]
     Active Substance: PANCRELIPASE

REACTIONS (4)
  - Ocular discomfort [Unknown]
  - Headache [Unknown]
  - Rhinorrhoea [Unknown]
  - Nasal congestion [Unknown]
